FAERS Safety Report 22155539 (Version 2)
Quarter: 2023Q2

REPORT INFORMATION
  Report Type: Spontaneous
  Country: CO (occurrence: CO)
  Receive Date: 20230330
  Receipt Date: 20230425
  Transmission Date: 20230721
  Serious: Yes (Hospitalization, Other)
  Sender: FDA-Public Use
  Company Number: CO-GLAXOSMITHKLINE-CO2023AMR047240

PATIENT

DRUGS (4)
  1. MEPOLIZUMAB [Suspect]
     Active Substance: MEPOLIZUMAB
     Indication: Asthma
     Dosage: 100 MG, MO
     Dates: start: 20220707, end: 20220913
  2. FLUTICASONE FUROATE + UMECLIDINIUM + VILANTEROL [Concomitant]
     Indication: Product used for unknown indication
     Dosage: 1 PUFF(S), QD
  3. GLYCOPYRRONIUM + INDACATEROL [Concomitant]
     Indication: Product used for unknown indication
     Dosage: 1 BLISTER EVERY 24
  4. ALBUTEROL [Concomitant]
     Active Substance: ALBUTEROL
     Indication: Product used for unknown indication
     Dosage: AS NEEDED WITH INHALOCAMERA

REACTIONS (3)
  - Pneumonia [Recovered/Resolved]
  - Chest pain [Recovered/Resolved]
  - Inappropriate schedule of product administration [Unknown]

NARRATIVE: CASE EVENT DATE: 20230310
